FAERS Safety Report 9019616 (Version 1)
Quarter: 2013Q1

REPORT INFORMATION
  Report Type: Report from Study
  Country: DE (occurrence: DE)
  Receive Date: 20130118
  Receipt Date: 20130118
  Transmission Date: 20140127
  Serious: No
  Sender: FDA-Public Use
  Company Number: DE-ROCHE-1179871

PATIENT
  Age: 82 Year
  Sex: Female
  Weight: 81.08 kg

DRUGS (3)
  1. RANIBIZUMAB [Suspect]
     Indication: DIABETIC RETINAL OEDEMA
     Route: 050
     Dates: start: 20120821
  2. RANIBIZUMAB [Suspect]
     Route: 050
     Dates: start: 20121016
  3. HYLO-COMOD [Concomitant]
     Route: 065
     Dates: start: 2009

REACTIONS (1)
  - Corneal erosion [Unknown]
